FAERS Safety Report 11829013 (Version 3)
Quarter: 2016Q1

REPORT INFORMATION
  Report Type: Report from Study
  Country: US (occurrence: US)
  Receive Date: 20151211
  Receipt Date: 20160203
  Transmission Date: 20160525
  Serious: Yes (Hospitalization, Other)
  Sender: FDA-Public Use
  Company Number: US-ACTELION-A-US2015-128240

PATIENT
  Age: 51 Year
  Sex: Female

DRUGS (2)
  1. VELETRI [Suspect]
     Active Substance: EPOPROSTENOL
     Indication: PULMONARY HYPERTENSION
     Dosage: 8.5 UNK, UNK
     Route: 042
     Dates: start: 20151118
  2. LETAIRIS [Suspect]
     Active Substance: AMBRISENTAN
     Indication: PRODUCT USED FOR UNKNOWN INDICATION
     Dosage: 10 MG, QD
     Route: 065
     Dates: start: 20151119

REACTIONS (8)
  - Productive cough [Unknown]
  - Pulmonary hypertension [Unknown]
  - Vomiting [Unknown]
  - Mental status changes [Unknown]
  - Hypotension [Unknown]
  - Dyspnoea [Unknown]
  - Cyanosis [Unknown]
  - Vital functions abnormal [Unknown]
